FAERS Safety Report 18910551 (Version 1)
Quarter: 2021Q1

REPORT INFORMATION
  Report Type: Report from Study
  Country: CA (occurrence: CA)
  Receive Date: 20210218
  Receipt Date: 20210218
  Transmission Date: 20210420
  Serious: Yes (Other)
  Sender: FDA-Public Use
  Company Number: PHHY2019CA053282

PATIENT
  Age: 63 Year
  Sex: Female

DRUGS (2)
  1. ACLASTA [Suspect]
     Active Substance: ZOLEDRONIC ACID
     Dosage: UNK
     Route: 065
     Dates: start: 20191211
  2. ACLASTA [Suspect]
     Active Substance: ZOLEDRONIC ACID
     Indication: OSTEOPOROSIS
     Dosage: 5 MG, UNKNOWN
     Route: 042
     Dates: start: 20180116

REACTIONS (10)
  - Pain in extremity [Unknown]
  - Foot deformity [Unknown]
  - Pain [Recovered/Resolved]
  - Illness [Unknown]
  - Gait disturbance [Unknown]
  - Osteoarthritis [Unknown]
  - Rheumatoid arthritis [Unknown]
  - Systemic lupus erythematosus [Unknown]
  - Fibromyalgia [Unknown]
  - Osteogenesis imperfecta [Unknown]

NARRATIVE: CASE EVENT DATE: 201801
